FAERS Safety Report 17231574 (Version 2)
Quarter: 2020Q1

REPORT INFORMATION
  Report Type: Spontaneous
  Country: US (occurrence: US)
  Receive Date: 20200103
  Receipt Date: 20200130
  Transmission Date: 20200409
  Serious: No
  Sender: FDA-Public Use
  Company Number: US-PFIZER INC-2020001677

PATIENT
  Age: 72 Year
  Sex: Female
  Weight: 53.51 kg

DRUGS (3)
  1. CLOFAZIMINE [Suspect]
     Active Substance: CLOFAZIMINE
     Dosage: 100 MILLIGRAM, 3XW
     Dates: start: 20191120
  2. CLOFAZIMINE [Suspect]
     Active Substance: CLOFAZIMINE
     Indication: IMMUNE SYSTEM DISORDER
     Dosage: 100 MILLIGRAM, QD
     Dates: start: 201906
  3. CLOFAZIMINE [Suspect]
     Active Substance: CLOFAZIMINE
     Dosage: 100 MILLIGRAM, 4XW
     Dates: start: 2019

REACTIONS (1)
  - Hypersensitivity [Unknown]
